FAERS Safety Report 24164262 (Version 1)
Quarter: 2024Q3

REPORT INFORMATION
  Report Type: Spontaneous
  Country: CN (occurrence: CN)
  Receive Date: 20240801
  Receipt Date: 20240801
  Transmission Date: 20241017
  Serious: Yes (Life-Threatening, Hospitalization, Other)
  Sender: MERCK
  Company Number: CN-009507513-2407CHN015738

PATIENT
  Age: 66 Year
  Sex: Male
  Weight: 69 kg

DRUGS (6)
  1. KEYTRUDA [Suspect]
     Active Substance: PEMBROLIZUMAB
     Indication: Neoplasm malignant
     Dosage: 200 MG, ONCE
     Route: 041
     Dates: start: 20240708, end: 20240708
  2. DOCETAXEL [Suspect]
     Active Substance: DOCETAXEL\DOCETAXEL ANHYDROUS
     Indication: Neoplasm malignant
     Dosage: 120 MG, ONCE
     Route: 041
     Dates: start: 20240708, end: 20240708
  3. CISPLATIN [Suspect]
     Active Substance: CISPLATIN
     Indication: Neoplasm malignant
     Dosage: 60 MG, QD
     Route: 041
     Dates: start: 20240708, end: 20240709
  4. SODIUM CHLORIDE [Concomitant]
     Active Substance: SODIUM CHLORIDE
     Indication: Medication dilution
     Dosage: 92 ML, ONCE
     Route: 041
     Dates: start: 20240708, end: 20240708
  5. SODIUM CHLORIDE [Concomitant]
     Active Substance: SODIUM CHLORIDE
     Dosage: 250 ML, ONCE
     Route: 041
     Dates: start: 20240708, end: 20240708
  6. SODIUM CHLORIDE [Concomitant]
     Active Substance: SODIUM CHLORIDE
     Dosage: 500 ML, QD
     Route: 041
     Dates: start: 20240708, end: 20240709

REACTIONS (2)
  - Myelosuppression [Recovering/Resolving]
  - Product use issue [Unknown]

NARRATIVE: CASE EVENT DATE: 20240708
